FAERS Safety Report 23605768 (Version 1)
Quarter: 2024Q1

REPORT INFORMATION
  Report Type: Spontaneous
  Country: US (occurrence: US)
  Receive Date: 20240307
  Receipt Date: 20240307
  Transmission Date: 20240410
  Serious: No
  Sender: FDA-Public Use
  Company Number: US-SANOFI-01966235

PATIENT
  Sex: Male

DRUGS (3)
  1. DUPIXENT [Suspect]
     Active Substance: DUPILUMAB
     Indication: Bronchitis chronic
     Dosage: 300 MG, QOW
  2. DUPIXENT [Suspect]
     Active Substance: DUPILUMAB
     Indication: Eosinophilia
     Dosage: 200 MG, QOW
  3. ALBUTEROL [Concomitant]
     Active Substance: ALBUTEROL

REACTIONS (1)
  - Off label use [Unknown]
